FAERS Safety Report 24406609 (Version 3)
Quarter: 2025Q1

REPORT INFORMATION
  Report Type: Spontaneous
  Country: US (occurrence: US)
  Receive Date: 20241007
  Receipt Date: 20250107
  Transmission Date: 20250416
  Serious: Yes (Other)
  Sender: BRISTOL-MYERS SQUIBB COMPANY
  Company Number: US-BRISTOL-MYERS SQUIBB COMPANY-2024-156535

PATIENT
  Age: 36 Year
  Sex: Female

DRUGS (2)
  1. OPDIVO [Suspect]
     Active Substance: NIVOLUMAB
     Indication: Rectal cancer
  2. YERVOY [Suspect]
     Active Substance: IPILIMUMAB
     Indication: Rectal cancer

REACTIONS (2)
  - Malignant neoplasm progression [Unknown]
  - Off label use [Unknown]
